FAERS Safety Report 24700660 (Version 2)
Quarter: 2025Q1

REPORT INFORMATION
  Report Type: Report from Study
  Country: ES (occurrence: ES)
  Receive Date: 20241205
  Receipt Date: 20250311
  Transmission Date: 20250409
  Serious: Yes (Other)
  Sender: TAKEDA
  Company Number: ES-TAKEDA-2020TUS053754

PATIENT
  Sex: Male

DRUGS (17)
  1. TEDUGLUTIDE [Suspect]
     Active Substance: TEDUGLUTIDE
     Indication: Short-bowel syndrome
     Dosage: 0.8 MILLIGRAM, QD
     Dates: start: 201706, end: 20211021
  2. TEDUGLUTIDE [Suspect]
     Active Substance: TEDUGLUTIDE
     Dosage: 1 MILLIGRAM, QD
     Dates: start: 20211021, end: 20240828
  3. TEDUGLUTIDE [Suspect]
     Active Substance: TEDUGLUTIDE
     Dosage: 2 MILLIGRAM, QD
     Dates: start: 20240828
  4. TEDUGLUTIDE [Suspect]
     Active Substance: TEDUGLUTIDE
  5. METRONIDAZOLE [Concomitant]
     Active Substance: METRONIDAZOLE
     Indication: Overgrowth bacterial
  6. RIFAXIMIN [Concomitant]
     Active Substance: RIFAXIMIN
     Indication: Overgrowth bacterial
  7. DIETARY SUPPLEMENT [Concomitant]
     Active Substance: DIETARY SUPPLEMENT
     Indication: Prophylaxis
     Dosage: 2 MILLILITER, QD
     Dates: start: 20221026
  8. Protovit [Concomitant]
     Indication: Prophylaxis
     Dosage: 0.50 MILLILITER, QD
     Dates: start: 20221026
  9. ZINC SULFATE [Concomitant]
     Active Substance: ZINC SULFATE
     Indication: Prophylaxis
     Dosage: 0.30 MILLILITER, QD
     Dates: start: 20221026, end: 20230721
  10. ZINC SULFATE [Concomitant]
     Active Substance: ZINC SULFATE
     Dosage: 0.5 MILLILITER, QD
     Dates: start: 20211203, end: 20221026
  11. ZINC SULFATE [Concomitant]
     Active Substance: ZINC SULFATE
     Dosage: 0.3 MILLILITER, QD
     Dates: start: 20221026, end: 20230721
  12. RETINOL [Concomitant]
     Active Substance: RETINOL
     Indication: Prophylaxis
     Dates: start: 20220209, end: 20221026
  13. RETINOL [Concomitant]
     Active Substance: RETINOL
     Dates: start: 20221026, end: 20230721
  14. CHOLECALCIFEROL [Concomitant]
     Active Substance: CHOLECALCIFEROL
     Indication: Vitamin D deficiency
     Dosage: 2000 INTERNATIONAL UNIT, QD
     Dates: start: 20221025
  15. Vitamina K1 [Concomitant]
     Indication: Prophylaxis
     Dosage: 2 MILLIGRAM, QD
     Dates: start: 20211203
  16. FERRIC PYROPHOSPHATE [Concomitant]
     Active Substance: FERRIC PYROPHOSPHATE
     Indication: Prophylaxis
     Dosage: 3 MILLILITER, QD
     Dates: start: 20211203, end: 20221026
  17. FERRIC PYROPHOSPHATE [Concomitant]
     Active Substance: FERRIC PYROPHOSPHATE
     Dosage: 1 MILLILITER, QD
     Dates: start: 20221026, end: 20240828

REACTIONS (2)
  - Haematochezia [Recovered/Resolved]
  - Vitamin B12 deficiency [Recovered/Resolved]

NARRATIVE: CASE EVENT DATE: 20201119
